FAERS Safety Report 8320092-7 (Version None)
Quarter: 2012Q2

REPORT INFORMATION
  Report Type: 
  Country: None (occurrence: None)
  Receive Date: 20120429
  Receipt Date: 20120420
  Transmission Date: 20120825
  Serious: Yes (Other)
  Sender: FDA-Public Use
  Company Number: US-VERTEX PHARMACEUTICALS INC.-AE-2012-002706

PATIENT
  Sex: Male

DRUGS (13)
  1. INCIVEK [Suspect]
     Indication: HEPATITIS C
     Route: 048
     Dates: start: 20120112, end: 20120223
  2. PEGASYS [Concomitant]
     Indication: HEPATITIS C
     Dates: start: 20120112
  3. NAPROXEN (ALEVE) [Concomitant]
  4. NORTRIPTYLINE HCL [Concomitant]
  5. PROCRIT [Concomitant]
  6. FOLIC ACID [Concomitant]
  7. IBUPROFEN (ADVIL) [Concomitant]
  8. RIBAVIRIN [Concomitant]
     Dates: start: 20120223
  9. LISINOPRIL [Concomitant]
  10. FERROUS SULFATE TAB [Concomitant]
  11. RIBAVIRIN [Concomitant]
     Indication: HEPATITIS C
     Dates: start: 20120112
  12. COLCHICINE [Concomitant]
  13. LYRICA [Concomitant]

REACTIONS (4)
  - FATIGUE [None]
  - RASH ERYTHEMATOUS [None]
  - PRURITUS [None]
  - RENAL FAILURE ACUTE [None]
